FAERS Safety Report 13517535 (Version 2)
Quarter: 2017Q2

REPORT INFORMATION
  Report Type: Spontaneous
  Country: DE (occurrence: DE)
  Receive Date: 20170505
  Receipt Date: 20170606
  Transmission Date: 20170830
  Serious: Yes (Life-Threatening, Hospitalization)
  Sender: FDA-Public Use
  Company Number: DE-TEVA-765448GER

PATIENT
  Age: 75 Year
  Sex: Female
  Weight: 52 kg

DRUGS (11)
  1. ESIDRIX [Concomitant]
     Active Substance: HYDROCHLOROTHIAZIDE
     Dosage: 1-0-0
  2. IBUPROFEN. [Concomitant]
     Active Substance: IBUPROFEN
     Dosage: AS NEEDED
  3. METFORMIN [Suspect]
     Active Substance: METFORMIN HYDROCHLORIDE
     Indication: TYPE 2 DIABETES MELLITUS
     Dosage: 2000 MILLIGRAM DAILY;
     Route: 048
     Dates: end: 20160407
  4. LIMPTAR [Concomitant]
     Active Substance: AMINOPHYLLINE\QUININE SULFATE
     Dosage: 0-0-1
  5. ASS 100 [Concomitant]
     Active Substance: ASPIRIN
     Dosage: 100 MILLIGRAM DAILY;
  6. RAMIPRIL/HYDROCHLOROTHIAZID 5 MG/12.5 MG [Concomitant]
     Dosage: 1 DOSAGE FORMS DAILY; 1 DF DOSAGE FORM CONTAINS 5 MG RAMIPRIL AND 12.5 MG HYDROCHLOROTHIAZID
  7. MAGNESIUM [Concomitant]
     Active Substance: MAGNESIUM
     Dosage: 0-0-1
  8. NOVAMINSULFON [Concomitant]
     Active Substance: METAMIZOLE
     Dosage: AS NEEDED
  9. REPAGLINID [Concomitant]
     Active Substance: REPAGLINIDE
     Dosage: 3 MILLIGRAM DAILY;
  10. SALBUTAMOL [Concomitant]
     Active Substance: ALBUTEROL
     Dosage: 1-0-1 AS NEEDED
  11. PRAVASTATIN. [Concomitant]
     Active Substance: PRAVASTATIN
     Dosage: 40 MILLIGRAM DAILY;

REACTIONS (3)
  - Toxicity to various agents [Recovering/Resolving]
  - Hypoglycaemia [Recovering/Resolving]
  - Lactic acidosis [Recovering/Resolving]

NARRATIVE: CASE EVENT DATE: 20160408
